FAERS Safety Report 15206879 (Version 7)
Quarter: 2020Q1

REPORT INFORMATION
  Report Type: Report from Study
  Country: JP (occurrence: JP)
  Receive Date: 20180727
  Receipt Date: 20200129
  Transmission Date: 20200409
  Serious: Yes (Hospitalization, Other)
  Sender: FDA-Public Use
  Company Number: JP-ASTRAZENECA-2018SE94524

PATIENT
  Age: 60 Year
  Sex: Female
  Weight: 63 kg

DRUGS (8)
  1. LYNPARZA [Suspect]
     Active Substance: OLAPARIB
     Indication: OVARIAN CANCER
     Route: 048
     Dates: start: 20180313, end: 20180327
  2. LYNPARZA [Suspect]
     Active Substance: OLAPARIB
     Indication: OVARIAN CANCER
     Route: 048
     Dates: start: 20181218, end: 20190228
  3. LYNPARZA [Suspect]
     Active Substance: OLAPARIB
     Indication: OVARIAN CANCER
     Route: 048
     Dates: start: 20180904, end: 20181015
  4. LYNPARZA [Suspect]
     Active Substance: OLAPARIB
     Indication: OVARIAN CANCER
     Route: 048
     Dates: start: 20180717, end: 20180903
  5. LYNPARZA [Suspect]
     Active Substance: OLAPARIB
     Indication: OVARIAN CANCER
     Route: 048
     Dates: start: 20180605, end: 20180614
  6. LYNPARZA [Suspect]
     Active Substance: OLAPARIB
     Indication: OVARIAN CANCER
     Route: 048
     Dates: start: 20180301, end: 20180312
  7. MS CONTIN [Suspect]
     Active Substance: MORPHINE SULFATE
     Indication: NEUROPATHY PERIPHERAL
     Route: 065
     Dates: start: 20180605, end: 20180622
  8. LYNPARZA [Suspect]
     Active Substance: OLAPARIB
     Indication: OVARIAN CANCER
     Route: 048
     Dates: start: 20181030, end: 20181203

REACTIONS (7)
  - Renal impairment [Recovering/Resolving]
  - Interstitial lung disease [Recovered/Resolved]
  - Pyrexia [Recovered/Resolved]
  - Anaemia [Recovered/Resolved]
  - Neutropenia [Recovered/Resolved]
  - Nausea [Recovered/Resolved]
  - Leukopenia [Recovered/Resolved]

NARRATIVE: CASE EVENT DATE: 20180313
